FAERS Safety Report 8680140 (Version 2)
Quarter: 2013Q4

REPORT INFORMATION
  Report Type: Spontaneous
  Country: US (occurrence: US)
  Receive Date: 20120724
  Receipt Date: 20131128
  Transmission Date: 20140711
  Serious: No
  Sender: FDA-Public Use
  Company Number: US-JNJFOC-20120707242

PATIENT
  Sex: Female
  Weight: 72.58 kg

DRUGS (5)
  1. DURAGESIC [Suspect]
     Indication: PAIN
     Route: 062
  2. DURAGESIC [Suspect]
     Indication: PAIN
     Route: 062
     Dates: start: 2007
  3. PERCOCET [Concomitant]
     Indication: PAIN
     Route: 048
     Dates: start: 2007
  4. KLONOPIN [Concomitant]
     Indication: ANXIETY
     Route: 065
     Dates: start: 1992
  5. UNKNOWN MEDICATION [Concomitant]
     Indication: HYPERTENSION
     Route: 048

REACTIONS (6)
  - Back pain [Not Recovered/Not Resolved]
  - Phantom pain [Not Recovered/Not Resolved]
  - Drug dose omission [Unknown]
  - Abasia [Not Recovered/Not Resolved]
  - Wrong technique in drug usage process [Not Recovered/Not Resolved]
  - Drug ineffective [Not Recovered/Not Resolved]
